FAERS Safety Report 7360080-0 (Version None)
Quarter: 2011Q1

REPORT INFORMATION
  Report Type: 
  Country: None (occurrence: None)
  Receive Date: 20110318
  Receipt Date: 20110303
  Transmission Date: 20110831
  Serious: No
  Sender: FDA-Public Use
  Company Number: PHHY2010JP81242

PATIENT

DRUGS (2)
  1. ZOMETA [Suspect]
     Indication: METASTASES TO BONE
     Route: 041
  2. ZOMETA [Suspect]
     Dosage: UNK
     Route: 041

REACTIONS (2)
  - GINGIVAL INFECTION [None]
  - IMPAIRED HEALING [None]
